FAERS Safety Report 19096217 (Version 1)
Quarter: 2021Q2

REPORT INFORMATION
  Report Type: Spontaneous
  Country: DE (occurrence: DE)
  Receive Date: 20210406
  Receipt Date: 20210406
  Transmission Date: 20210717
  Serious: Yes (Life-Threatening, Hospitalization, Disabling, Other)
  Sender: FDA-Public Use
  Company Number: DE-SA-2021SA111202

PATIENT
  Age: 40 Year
  Sex: Female
  Weight: 58 kg

DRUGS (2)
  1. EREMFAT I.V. ^RIEMSER^ [Suspect]
     Active Substance: RIFAMPIN
     Indication: INFLUENZA LIKE ILLNESS
     Dosage: UNK
     Route: 048
     Dates: start: 20210102, end: 20210102
  2. RIFAMPICIN [Suspect]
     Active Substance: RIFAMPIN
     Dosage: UNK
     Dates: start: 20200709

REACTIONS (23)
  - Renal failure [Not Recovered/Not Resolved]
  - Haemodialysis [Not Recovered/Not Resolved]
  - Headache [Unknown]
  - Thrombocytopenia [Unknown]
  - Vomiting [Unknown]
  - Hepatic encephalopathy [Not Recovered/Not Resolved]
  - Haemolysis [Unknown]
  - Diarrhoea [Not Recovered/Not Resolved]
  - Fibrin D dimer increased [Unknown]
  - Encephalopathy [Not Recovered/Not Resolved]
  - Melaena [Not Recovered/Not Resolved]
  - Jaundice [Not Recovered/Not Resolved]
  - Pyrexia [Unknown]
  - Nausea [Unknown]
  - Acute hepatic failure [Not Recovered/Not Resolved]
  - Cardiovascular disorder [Unknown]
  - Swelling face [Recovering/Resolving]
  - Rash [Unknown]
  - Abdominal pain [Not Recovered/Not Resolved]
  - C-reactive protein abnormal [Unknown]
  - Delirium [Not Recovered/Not Resolved]
  - Disseminated intravascular coagulation [Not Recovered/Not Resolved]
  - Prescription drug used without a prescription [Unknown]

NARRATIVE: CASE EVENT DATE: 20200709
